FAERS Safety Report 7451229-X (Version None)
Quarter: 2011Q2

REPORT INFORMATION
  Report Type: 
  Country: None (occurrence: None)
  Receive Date: 20110502
  Receipt Date: 20110422
  Transmission Date: 20111010
  Serious: Yes (Hospitalization, Other)
  Sender: FDA-Public Use
  Company Number: US-ASTRAZENECA-2011SE18865

PATIENT
  Age: 57 Year
  Sex: Female
  Weight: 68 kg

DRUGS (8)
  1. SEROQUEL [Suspect]
     Route: 048
     Dates: start: 20100901
  2. XANAX [Concomitant]
  3. PENTAZOCINE LACTATE [Concomitant]
     Indication: PAIN
     Dosage: AS REQUIRED
  4. FOLIC ACID [Concomitant]
     Indication: NEURITIS
  5. PRAVACHOL [Concomitant]
  6. SINGULAIR [Concomitant]
  7. SEROQUEL [Suspect]
     Indication: BIPOLAR DISORDER
     Route: 048
     Dates: start: 20050101, end: 20100601
  8. OXYCONTIN [Concomitant]
     Indication: PAIN
     Dosage: AS REQUIRED

REACTIONS (11)
  - ROAD TRAFFIC ACCIDENT [None]
  - BLOOD GLUCOSE INCREASED [None]
  - BLOOD TRIGLYCERIDES INCREASED [None]
  - INTERVERTEBRAL DISC PROTRUSION [None]
  - GLYCOSYLATED HAEMOGLOBIN INCREASED [None]
  - LOW DENSITY LIPOPROTEIN INCREASED [None]
  - CATARACT OPERATION [None]
  - WEIGHT INCREASED [None]
  - HIGH DENSITY LIPOPROTEIN DECREASED [None]
  - ROTATOR CUFF REPAIR [None]
  - DRUG DOSE OMISSION [None]
